FAERS Safety Report 4292405-7 (Version None)
Quarter: 2004Q1

REPORT INFORMATION
  Report Type: 
  Country: None (occurrence: None)
  Receive Date: 20040126
  Receipt Date: 20031030
  Transmission Date: 20041129
  Serious: No
  Sender: FDA-Public Use
  Company Number: USA030843185

PATIENT
  Age: 70 Year
  Sex: Female
  Weight: 48 kg

DRUGS (10)
  1. FORTEO [Suspect]
     Indication: OSTEOPOROSIS
     Dosage: 20 UG/DAY
     Dates: start: 20030701
  2. HYDROCODONE [Concomitant]
  3. OXYCONTIN [Concomitant]
  4. PROTONIX [Concomitant]
  5. TRIAMTERENE [Concomitant]
  6. HYDROXYCHLOROQUINE [Concomitant]
  7. FOLIC ACID [Concomitant]
  8. ZOLOFT [Concomitant]
  9. METHOTREXATE [Concomitant]
  10. SYNTHROID [Concomitant]

REACTIONS (6)
  - ARTHRALGIA [None]
  - ASTHENIA [None]
  - CONSTIPATION [None]
  - MUSCLE CRAMP [None]
  - NAUSEA [None]
  - WEIGHT DECREASED [None]
